FAERS Safety Report 18134800 (Version 1)
Quarter: 2020Q3

REPORT INFORMATION
  Report Type: Spontaneous
  Country: US (occurrence: US)
  Receive Date: 20200810
  Receipt Date: 20200810
  Transmission Date: 20201103
  Serious: Yes (Other)
  Sender: FDA-Public Use
  Company Number: None

PATIENT
  Age: 36 Year
  Sex: Male
  Weight: 167.4 kg

DRUGS (6)
  1. NEXIUM [Concomitant]
     Active Substance: ESOMEPRAZOLE MAGNESIUM
  2. CORALITE PAIN RELIEF [Suspect]
     Active Substance: CAPSAICIN\MENTHOL
     Indication: NECK PAIN
     Dosage: ?          QUANTITY:1 PATCH(ES);OTHER FREQUENCY:3 TO 4 TIMES PER D;?
     Route: 062
     Dates: start: 20200810, end: 20200810
  3. LINSINAPRIL [Concomitant]
  4. CORALITE PAIN RELIEF [Suspect]
     Active Substance: CAPSAICIN\MENTHOL
     Indication: BACK PAIN
     Dosage: ?          QUANTITY:1 PATCH(ES);OTHER FREQUENCY:3 TO 4 TIMES PER D;?
     Route: 062
     Dates: start: 20200810, end: 20200810
  5. ZOLOFT [Concomitant]
     Active Substance: SERTRALINE HYDROCHLORIDE
  6. ASPIRIN. [Concomitant]
     Active Substance: ASPIRIN

REACTIONS (4)
  - Chemical burn [None]
  - Application site burn [None]
  - Secretion discharge [None]
  - Hyperhidrosis [None]

NARRATIVE: CASE EVENT DATE: 20200810
